FAERS Safety Report 6383893-0 (Version None)
Quarter: 2009Q3

REPORT INFORMATION
  Report Type: 
  Country: None (occurrence: None)
  Receive Date: 20090929
  Receipt Date: 20090929
  Transmission Date: 20100115
  Serious: Yes (Other)
  Sender: FDA-Public Use
  Company Number: None

PATIENT
  Age: 61 Year
  Sex: Female
  Weight: 61.2356 kg

DRUGS (1)
  1. DRISDOL [Suspect]
     Indication: OSTEOPOROSIS
     Dosage: 50,000 IU 1/WK PO
     Route: 048
     Dates: start: 20090724, end: 20090807

REACTIONS (5)
  - ALOPECIA [None]
  - ASTHENIA [None]
  - DRUG INTERACTION [None]
  - FATIGUE [None]
  - PARAESTHESIA [None]
